FAERS Safety Report 10143293 (Version 2)
Quarter: 2014Q2

REPORT INFORMATION
  Report Type: Spontaneous
  Country: US (occurrence: US)
  Receive Date: 20140430
  Receipt Date: 20140530
  Transmission Date: 20141212
  Serious: No
  Sender: FDA-Public Use
  Company Number: US-009507513-1404USA011653

PATIENT
  Age: 42 Year
  Sex: Male

DRUGS (4)
  1. PEGINTRON [Suspect]
     Indication: HEPATITIS C
     Dosage: RECEIVED EACH ON SATURDAY
     Dates: start: 20140412
  2. RIBAVIRIN [Suspect]
  3. LORATAB [Concomitant]
  4. SOVALDI [Concomitant]

REACTIONS (13)
  - Bone pain [Unknown]
  - Abnormal dreams [Unknown]
  - Rash macular [Unknown]
  - Rash [Unknown]
  - Swelling [Unknown]
  - Chills [Unknown]
  - Malaise [Unknown]
  - Influenza like illness [Unknown]
  - Injection site urticaria [Unknown]
  - Pyrexia [Unknown]
  - Fatigue [Unknown]
  - Drug dose omission [Unknown]
  - Product quality issue [Unknown]
